FAERS Safety Report 9155152 (Version 1)
Quarter: 2013Q1

REPORT INFORMATION
  Report Type: Spontaneous
  Country: DK (occurrence: None)
  Receive Date: 20130205
  Receipt Date: 20130205
  Transmission Date: 20140127
  Serious: Yes (Hospitalization)
  Sender: FDA-Public Use
  Company Number: 2013MA000824

PATIENT
  Age: 57 Year
  Sex: Male

DRUGS (2)
  1. NAPROXEN DELAYED-RELEASE TABLETS, 500 MG (PUREPAC) (NAPROXEN) [Suspect]
     Indication: BACK PAIN
     Route: 048
     Dates: start: 20120828, end: 20120902
  2. NAPROXEN [Concomitant]

REACTIONS (4)
  - Chest pain [None]
  - Dyspnoea [None]
  - Troponin increased [None]
  - Blood cholesterol increased [None]
